FAERS Safety Report 7330642-5 (Version None)
Quarter: 2011Q1

REPORT INFORMATION
  Report Type: 
  Country: None (occurrence: None)
  Receive Date: 20110304
  Receipt Date: 20110223
  Transmission Date: 20110831
  Serious: Yes (Other)
  Sender: FDA-Public Use
  Company Number: US-RB-021896-11

PATIENT
  Age: 53 Year
  Sex: Female

DRUGS (1)
  1. MUCINEX [Suspect]
     Dosage: ON 22-FEB-2011
     Route: 048

REACTIONS (2)
  - HAEMATOCHEZIA [None]
  - DIZZINESS [None]
